FAERS Safety Report 9308574 (Version 2)
Quarter: 2013Q2

REPORT INFORMATION
  Report Type: Spontaneous
  Country: CA (occurrence: CA)
  Receive Date: 20130524
  Receipt Date: 20130610
  Transmission Date: 20140414
  Serious: Yes (Death, Hospitalization, Other)
  Sender: FDA-Public Use
  Company Number: CA-ELI_LILLY_AND_COMPANY-CA201305005341

PATIENT
  Age: 95 Year
  Sex: Female
  Weight: 35.37 kg

DRUGS (10)
  1. FORTEO [Suspect]
     Indication: OSTEOPOROSIS
     Dosage: 20 UG, QD
     Route: 058
     Dates: start: 20121215, end: 20130514
  2. ACETAMINOPHEN [Concomitant]
  3. VITAMIN D NOS [Concomitant]
  4. CALCIUM [Concomitant]
  5. APO-HYDRO [Concomitant]
  6. HYDROMORPH CONTIN [Concomitant]
  7. CANDESARTAN [Concomitant]
  8. ASA [Concomitant]
  9. SENOKOT [Concomitant]
  10. PRESERVISION LUTEIN [Concomitant]

REACTIONS (6)
  - Death [Fatal]
  - Intestinal obstruction [Not Recovered/Not Resolved]
  - Neoplasm malignant [Not Recovered/Not Resolved]
  - Back pain [Not Recovered/Not Resolved]
  - Weight abnormal [Not Recovered/Not Resolved]
  - Asthenia [Not Recovered/Not Resolved]
